FAERS Safety Report 7492299-2 (Version None)
Quarter: 2011Q2

REPORT INFORMATION
  Report Type: 
  Country: None (occurrence: None)
  Receive Date: 20110519
  Receipt Date: 20110510
  Transmission Date: 20111010
  Serious: Yes (Hospitalization)
  Sender: FDA-Public Use
  Company Number: DE-ABBOTT-11P-062-0703134-00

PATIENT
  Age: 40 Year
  Sex: Male
  Weight: 89.4 kg

DRUGS (13)
  1. KALETRA [Suspect]
     Indication: HIV INFECTION
     Dosage: P.O.,DOSE:800/200
     Dates: start: 20090218
  2. VALORON N [Concomitant]
     Indication: PRODUCT USED FOR UNKNOWN INDICATION
     Route: 048
     Dates: start: 20090707
  3. RIFABUTIN [Concomitant]
     Indication: PRODUCT USED FOR UNKNOWN INDICATION
  4. FRAXIPARIN [Concomitant]
     Indication: PRODUCT USED FOR UNKNOWN INDICATION
     Route: 058
  5. KALETRA [Concomitant]
     Indication: PRODUCT USED FOR UNKNOWN INDICATION
     Dosage: 200/150MG: BID, MORNING: TWICE, EVENING: TWICE
  6. CLARITHROMYCIN [Suspect]
     Indication: PRODUCT USED FOR UNKNOWN INDICATION
     Dates: start: 20090223
  7. MYCOBUTIN [Concomitant]
     Indication: PRODUCT USED FOR UNKNOWN INDICATION
     Dosage: 150MG DAILY
     Dates: start: 20090223
  8. PREDNISONE [Concomitant]
     Indication: PRODUCT USED FOR UNKNOWN INDICATION
     Dosage: 10MG EACH MORNING,  5MG EACH EVENING
     Dates: start: 20090707
  9. LORAZEPAM [Concomitant]
     Indication: PRODUCT USED FOR UNKNOWN INDICATION
  10. COTRIM [Concomitant]
     Indication: PRODUCT USED FOR UNKNOWN INDICATION
     Route: 048
     Dates: start: 20090218
  11. TRUVADA [Concomitant]
     Indication: PRODUCT USED FOR UNKNOWN INDICATION
     Dosage: 200/245 OPD
     Route: 048
     Dates: start: 20090218
  12. OMEPRAZOLE [Concomitant]
     Indication: PRODUCT USED FOR UNKNOWN INDICATION
     Route: 048
     Dates: start: 20090427
  13. PANTOPRAZOLE [Concomitant]
     Indication: PRODUCT USED FOR UNKNOWN INDICATION

REACTIONS (7)
  - MESENTERITIS [None]
  - IMMUNE RECONSTITUTION SYNDROME [None]
  - INTESTINAL MASS [None]
  - MESENTERIC ARTERIOSCLEROSIS [None]
  - ABDOMINAL PAIN [None]
  - LYMPHOMA [None]
  - ABDOMINAL ABSCESS [None]
